FAERS Safety Report 6384114-5 (Version None)
Quarter: 2009Q4

REPORT INFORMATION
  Report Type: 
  Country: None (occurrence: None)
  Receive Date: 20091001
  Receipt Date: 20090921
  Transmission Date: 20100525
  Serious: Yes (Other)
  Sender: FDA-Public Use
  Company Number: US-ABBOTT-09P-163-0595629-00

PATIENT
  Sex: Male
  Weight: 135.29 kg

DRUGS (11)
  1. TRILIPIX [Suspect]
     Indication: BLOOD TRIGLYCERIDES INCREASED
     Dates: start: 20090701, end: 20090801
  2. AZITHROMYCIN [Concomitant]
     Indication: DRUG USE FOR UNKNOWN INDICATION
     Dosage: 2 TABS ON DAY 1, THEN 1 TAB QD X 4D
  3. MECLIZINE [Concomitant]
     Indication: DRUG USE FOR UNKNOWN INDICATION
  4. SIMVASTATIN [Concomitant]
     Indication: DRUG USE FOR UNKNOWN INDICATION
  5. DETROL [Concomitant]
     Indication: DRUG USE FOR UNKNOWN INDICATION
  6. ACETAMINOPHEN AND HYDROCODONE BITARTRATE [Concomitant]
     Indication: DRUG USE FOR UNKNOWN INDICATION
     Dosage: 5/500MG
  7. CARDURA [Concomitant]
     Indication: DRUG USE FOR UNKNOWN INDICATION
  8. NIASPAN [Concomitant]
     Indication: DRUG USE FOR UNKNOWN INDICATION
  9. NAPROXEN [Concomitant]
     Indication: DRUG USE FOR UNKNOWN INDICATION
  10. COMPRESSION STOCKINGS [Concomitant]
     Indication: DRUG USE FOR UNKNOWN INDICATION
  11. TRIAMCINOLONE ACETONIDE [Concomitant]
     Indication: DRUG USE FOR UNKNOWN INDICATION

REACTIONS (14)
  - ANXIETY [None]
  - ARTHRALGIA [None]
  - CHEST DISCOMFORT [None]
  - CHEST PAIN [None]
  - COAGULOPATHY [None]
  - COUGH [None]
  - EAR PAIN [None]
  - EYE PRURITUS [None]
  - FATIGUE [None]
  - HYPOAESTHESIA [None]
  - IRRITABILITY [None]
  - LABYRINTHITIS [None]
  - OEDEMA [None]
  - PULMONARY EMBOLISM [None]
